FAERS Safety Report 16679314 (Version 1)
Quarter: 2019Q3

REPORT INFORMATION
  Report Type: Spontaneous
  Country: GB (occurrence: GB)
  Receive Date: 20190807
  Receipt Date: 20190807
  Transmission Date: 20191004
  Serious: Yes (Hospitalization)
  Sender: FDA-Public Use
  Company Number: GB-PFIZER INC-2019332053

PATIENT
  Age: 69 Year
  Sex: Female
  Weight: 59.8 kg

DRUGS (13)
  1. TIZANIDINE. [Concomitant]
     Active Substance: TIZANIDINE
     Dosage: UNK
  2. OMEPRAZOLE. [Concomitant]
     Active Substance: OMEPRAZOLE
  3. LEVOTHYROXINE. [Concomitant]
     Active Substance: LEVOTHYROXINE
  4. CLONAZEPAM. [Concomitant]
     Active Substance: CLONAZEPAM
  5. PREGABALIN. [Concomitant]
     Active Substance: PREGABALIN
     Dosage: UNK
  6. MODAFINIL. [Concomitant]
     Active Substance: MODAFINIL
     Dosage: UNK
  7. ATORVASTATIN [Concomitant]
     Active Substance: ATORVASTATIN
  8. FUROSEMIDE. [Concomitant]
     Active Substance: FUROSEMIDE
     Dosage: UNK
  9. TAZOCIN [Concomitant]
     Active Substance: PIPERACILLIN SODIUM\TAZOBACTAM SODIUM
     Dosage: UNK
  10. CITALOPRAM [Concomitant]
     Active Substance: CITALOPRAM HYDROBROMIDE
     Dosage: UNK
  11. FLUCONAZOLE. [Suspect]
     Active Substance: FLUCONAZOLE
     Indication: INFECTION
     Dosage: 150 MG, UNK
     Route: 048
     Dates: start: 20190531, end: 20190611
  12. COLECALCIFEROL [Concomitant]
     Active Substance: CHOLECALCIFEROL
     Dosage: UNK
  13. FENTANYL. [Interacting]
     Active Substance: FENTANYL
     Dosage: 75MCG/HR
     Route: 062

REACTIONS (4)
  - Respiratory failure [Unknown]
  - Drug interaction [Unknown]
  - Toxicity to various agents [Recovered/Resolved]
  - Apnoea [Unknown]

NARRATIVE: CASE EVENT DATE: 20190616
